FAERS Safety Report 8193608-1 (Version None)
Quarter: 2012Q1

REPORT INFORMATION
  Report Type: 
  Country: None (occurrence: None)
  Receive Date: 20120308
  Receipt Date: 20120306
  Transmission Date: 20120608
  Serious: Yes (Hospitalization, Other)
  Sender: FDA-Public Use
  Company Number: FR-PFIZER INC-2009226205

PATIENT
  Age: 34 Year
  Sex: Female

DRUGS (29)
  1. AMLODIPINE BESYLATE [Suspect]
     Dosage: 10 MG, 1X/DAY
     Route: 050
     Dates: start: 20080917, end: 20081215
  2. ATARAX [Suspect]
     Dosage: 25 MG, 1X/DAY
     Route: 050
     Dates: start: 20080818, end: 20081217
  3. TIXOCORTOL PIVALATE [Suspect]
     Dosage: 2 GTT, 2X/DAY
     Route: 050
     Dates: start: 20081031, end: 20081107
  4. KAYEXALATE [Suspect]
     Dosage: UNK
     Route: 050
     Dates: start: 20080613, end: 20080804
  5. ACETYLCYSTEINE [Suspect]
     Dosage: UNK
     Route: 050
     Dates: start: 20081107, end: 20081110
  6. NEXIUM [Suspect]
     Dosage: 40 MG, 1X/DAY
     Route: 050
     Dates: start: 20080613, end: 20080821
  7. AMLODIPINE BESYLATE [Suspect]
     Dosage: 5 MG, 1X/DAY
     Dates: start: 20080620, end: 20080916
  8. ISOTRETINOIN [Suspect]
     Dosage: UNK
     Route: 050
     Dates: start: 20080829, end: 20080916
  9. LASIX [Suspect]
     Dosage: 500 MG, 2X/DAY
     Route: 050
     Dates: start: 20080613, end: 20081215
  10. FOLIC ACID [Suspect]
     Dosage: 5 MG, 2X/DAY
     Route: 050
     Dates: start: 20081008, end: 20081217
  11. MUCOMYST [Suspect]
     Dosage: 200 MG, 2X/DAY
     Route: 050
     Dates: start: 20081107, end: 20081110
  12. ARANESP [Suspect]
     Dosage: 60 UG, WEEKLY
     Dates: start: 20080827, end: 20080928
  13. IMURAN [Suspect]
     Dosage: 1.5 DF, 2X/DAY
     Route: 050
     Dates: start: 20080613, end: 20080821
  14. KAYEXALATE [Suspect]
     Dosage: UNK
     Route: 050
     Dates: start: 20080805, end: 20081115
  15. CEFPODOXIME PROXETIL [Suspect]
     Dosage: 100 MG, 2X/DAY
     Route: 050
     Dates: start: 20081107, end: 20081117
  16. IMURAN [Suspect]
     Dosage: 0.5 DF, 1X/DAY
     Route: 050
     Dates: start: 20080906, end: 20080916
  17. NEORAL [Suspect]
     Dosage: 100 MG, 2X/DAY
     Route: 050
     Dates: end: 20081021
  18. NEORAL [Suspect]
     Dosage: 25 MG, 2X/DAY
     Route: 050
     Dates: start: 20081106, end: 20081217
  19. RENAGEL [Suspect]
     Dosage: 800 MG, 3X/DAY
     Route: 050
     Dates: start: 20080828, end: 20081215
  20. UN-ALFA [Suspect]
     Dosage: 0.5 UG, 1X/DAY
     Route: 050
     Dates: start: 20080704, end: 20081017
  21. VENOFER [Suspect]
     Dosage: 100 UG, TREE TIME X WEEK
     Dates: start: 20081017, end: 20081214
  22. IMURAN [Suspect]
     Dosage: 1 DF, 2X/DAY
     Route: 050
     Dates: start: 20080822, end: 20080905
  23. NEORAL [Suspect]
     Dosage: 50 MG, 2X/DAY
     Route: 050
     Dates: start: 20081022, end: 20081105
  24. ERYTHROMYCIN [Suspect]
     Dosage: UNK
     Dates: start: 20080829, end: 20080916
  25. ARANESP [Suspect]
     Dosage: 80 UG, UNK
     Dates: start: 20080929, end: 20081217
  26. VENOFER [Suspect]
     Dosage: 100 UG, TWICE X WEEK
     Dates: start: 20080613, end: 20081016
  27. RUBOZINC [Suspect]
     Dosage: 15 MG, 1X/DAY
     Route: 050
     Dates: start: 20080829, end: 20080916
  28. NEXIUM [Suspect]
     Dosage: 20 MG, 1X/DAY
     Route: 050
     Dates: start: 20080822, end: 20081217
  29. VENOFER [Suspect]
     Dosage: 100 UG, TWICE X WEEK
     Dates: start: 20081215, end: 20081217

REACTIONS (2)
  - MATERNAL EXPOSURE DURING PREGNANCY [None]
  - FOETAL DEATH [None]
